FAERS Safety Report 18120336 (Version 1)
Quarter: 2020Q3

REPORT INFORMATION
  Report Type: Spontaneous
  Country: US (occurrence: US)
  Receive Date: 20200806
  Receipt Date: 20200806
  Transmission Date: 20201103
  Serious: No
  Sender: FDA-Public Use
  Company Number: US-BAUSCH-BL-2020-000340

PATIENT
  Age: 70 Year
  Sex: Female
  Weight: 56.3 kg

DRUGS (6)
  1. MURO 128 [Suspect]
     Active Substance: SODIUM CHLORIDE
     Indication: PRODUCT USE IN UNAPPROVED INDICATION
     Dosage: STARTED NEW TUBE
     Route: 047
     Dates: start: 201910
  2. GENERIC SODIUM CHLORIDE HYPERTONICITY [Concomitant]
     Indication: IRIDOCORNEAL ENDOTHELIAL SYNDROME
     Route: 047
  3. MURO 128 [Suspect]
     Active Substance: SODIUM CHLORIDE
     Dosage: PURCHASED FROM ANOTHER STORE
     Route: 047
     Dates: start: 202006, end: 2020
  4. TIMOLOL. [Suspect]
     Active Substance: TIMOLOL
     Indication: PRODUCT USED FOR UNKNOWN INDICATION
     Dosage: DURING THE DAY
     Route: 047
     Dates: start: 202006
  5. MURO 128 [Suspect]
     Active Substance: SODIUM CHLORIDE
     Indication: IRIDOCORNEAL ENDOTHELIAL SYNDROME
     Dosage: NINE YEARS AGO PRIOR TO DATE OF INITIAL REPORT?APPLIED TO THE RIGHT EYE ONCE NIGHTLY
     Route: 047
     Dates: start: 2011
  6. MURO 128 [Suspect]
     Active Substance: SODIUM CHLORIDE
     Dosage: RESUMED
     Route: 047
     Dates: start: 20200727

REACTIONS (7)
  - Product availability issue [Unknown]
  - Ocular hyperaemia [Recovered/Resolved]
  - Eye irritation [Recovered/Resolved]
  - Product quality issue [Unknown]
  - Product use in unapproved indication [Unknown]
  - Eye inflammation [Recovered/Resolved]
  - Eye pain [Recovered/Resolved]

NARRATIVE: CASE EVENT DATE: 2011
